FAERS Safety Report 8925251 (Version 1)
Quarter: 2012Q4

REPORT INFORMATION
  Report Type: Report from Study
  Country: JP (occurrence: JP)
  Receive Date: 20121126
  Receipt Date: 20121126
  Transmission Date: 20130627
  Serious: Yes (Death, Life-Threatening, Other)
  Sender: FDA-Public Use
  Company Number: JP-CELGENEUS-087-50794-12061272

PATIENT
  Age: 67 None
  Sex: Male
  Weight: 64 kg

DRUGS (30)
  1. VIDAZA [Suspect]
     Indication: MDS
     Dosage: 37.5 milligram/sq. meter
     Route: 058
     Dates: start: 20110527, end: 20110602
  2. VIDAZA [Suspect]
     Dosage: 37.5 milligram/sq. meter
     Route: 058
     Dates: start: 20110625, end: 20110628
  3. VIDAZA [Suspect]
     Dosage: 37.5 milligram/sq. meter
     Route: 041
     Dates: start: 20111202, end: 20111208
  4. PREDONINE [Concomitant]
     Indication: DRUG USE FOR UNKNOWN INDICATION
     Route: 065
  5. VFEND [Concomitant]
     Indication: DRUG USE FOR UNKNOWN INDICATION
     Route: 065
  6. BAKTAR [Concomitant]
     Indication: DRUG USE FOR UNKNOWN INDICATION
     Route: 065
  7. OMEPRAL [Concomitant]
     Indication: DRUG USE FOR UNKNOWN INDICATION
     Route: 065
  8. MUCOSTA [Concomitant]
     Indication: DRUG USE FOR UNKNOWN INDICATION
     Route: 065
  9. ZYLORIC [Concomitant]
     Indication: DRUG USE FOR UNKNOWN INDICATION
     Route: 065
  10. RHYTHMY [Concomitant]
     Indication: DRUG USE FOR UNKNOWN INDICATION
     Route: 065
  11. MAXIPIME [Concomitant]
     Indication: DRUG USE FOR UNKNOWN INDICATION
     Route: 065
     Dates: start: 20110529, end: 20110607
  12. CLARITH [Concomitant]
     Indication: DRUG USE FOR UNKNOWN INDICATION
     Route: 065
     Dates: end: 20110604
  13. MEROPEN [Concomitant]
     Indication: DRUG USE FOR UNKNOWN INDICATION
     Route: 065
     Dates: start: 20110608, end: 20110620
  14. TARGOCID [Concomitant]
     Indication: DRUG USE FOR UNKNOWN INDICATION
     Route: 065
     Dates: start: 20110605, end: 20110618
  15. TARGOCID [Concomitant]
     Route: 065
     Dates: start: 20111213, end: 20111226
  16. FUNGUARD [Concomitant]
     Indication: DRUG USE FOR UNKNOWN INDICATION
     Route: 065
     Dates: start: 20110605, end: 20110620
  17. FUNGUARD [Concomitant]
     Route: 065
     Dates: start: 20110629, end: 20110713
  18. FUNGUARD [Concomitant]
     Route: 065
     Dates: end: 20111227
  19. PAZUCROSS [Concomitant]
     Indication: DRUG USE FOR UNKNOWN INDICATION
     Route: 065
     Dates: start: 20110629, end: 20110705
  20. VANCOMYCIN [Concomitant]
     Indication: DRUG USE FOR UNKNOWN INDICATION
     Route: 065
     Dates: start: 20110629, end: 20110708
  21. ZOSYN [Concomitant]
     Indication: DRUG USE FOR UNKNOWN INDICATION
     Route: 065
     Dates: start: 20110706, end: 20110716
  22. SOL-MELCORT [Concomitant]
     Indication: DRUG USE FOR UNKNOWN INDICATION
     Route: 065
     Dates: start: 20110608, end: 20110710
  23. SOL-MELCORT [Concomitant]
     Route: 065
     Dates: start: 20110611, end: 20110719
  24. URSO [Concomitant]
     Indication: DRUG USE FOR UNKNOWN INDICATION
     Route: 065
  25. ALFAROL [Concomitant]
     Indication: DRUG USE FOR UNKNOWN INDICATION
     Route: 065
  26. FINIBAX [Concomitant]
     Indication: DRUG USE FOR UNKNOWN INDICATION
     Route: 065
     Dates: end: 20111208
  27. FINIBAX [Concomitant]
     Route: 065
     Dates: start: 20111212, end: 20111225
  28. AMBISOME [Concomitant]
     Indication: DRUG USE FOR UNKNOWN INDICATION
     Route: 065
     Dates: start: 20111214, end: 20111231
  29. CIPROXAN [Concomitant]
     Indication: DRUG USE FOR UNKNOWN INDICATION
     Route: 065
     Dates: start: 20111226, end: 20111231
  30. MINOMYCIN [Concomitant]
     Indication: DRUG USE FOR UNKNOWN INDICATION
     Route: 065
     Dates: start: 20111227, end: 20111230

REACTIONS (10)
  - Pneumonia [Not Recovered/Not Resolved]
  - Organising pneumonia [Recovering/Resolving]
  - Neutrophil count decreased [Recovered/Resolved]
  - White blood cell count decreased [Recovering/Resolving]
  - Sepsis [Fatal]
  - Gamma-glutamyltransferase increased [Not Recovered/Not Resolved]
  - Alanine aminotransferase increased [Unknown]
  - Blood urea increased [Recovering/Resolving]
  - Blood creatinine increased [Recovered/Resolved]
  - Renal disorder [Recovering/Resolving]
